FAERS Safety Report 4743591-3 (Version None)
Quarter: 2005Q3

REPORT INFORMATION
  Report Type: 
  Country: None (occurrence: None)
  Receive Date: 20050809
  Receipt Date: 20050727
  Transmission Date: 20060218
  Serious: Yes (Hospitalization)
  Sender: FDA-Public Use
  Company Number: 2005FR-00161

PATIENT
  Age: 35 Year
  Sex: Female

DRUGS (8)
  1. FLUOXETINE [Suspect]
     Indication: DEPRESSION
     Dosage: 20 MG, ONCE DAILY, ORAL
     Route: 048
     Dates: start: 19920101
  2. OLANZAPINE [Concomitant]
  3. ZUCLOPENTHIXOL [Concomitant]
  4. LITHIUM [Concomitant]
  5. CHLORPROMAZINE HCL [Concomitant]
  6. PROCYCLIDINE HYDROCHLORIDE 2MG TAB [Concomitant]
  7. LEVOTHYROXINE [Concomitant]
  8. ORAL CONTRACEPTIVE PILL [Concomitant]

REACTIONS (23)
  - ABNORMAL BEHAVIOUR [None]
  - AMENORRHOEA [None]
  - BLOOD PROLACTIN INCREASED [None]
  - DRUG EFFECT DECREASED [None]
  - DRUG INEFFECTIVE [None]
  - EXTRAPYRAMIDAL DISORDER [None]
  - GALACTORRHOEA [None]
  - HALLUCINATIONS, MIXED [None]
  - HEADACHE [None]
  - HEMIANOPIA HETERONYMOUS [None]
  - HYPERHIDROSIS [None]
  - HYPERTENSION [None]
  - HYPOMANIA [None]
  - LOGORRHOEA [None]
  - MANIA [None]
  - PERSECUTORY DELUSION [None]
  - PITUITARY TUMOUR BENIGN [None]
  - PRESCRIBED OVERDOSE [None]
  - PSYCHOTIC DISORDER [None]
  - SALIVARY HYPERSECRETION [None]
  - SCHIZOAFFECTIVE DISORDER [None]
  - STRESS [None]
  - VISION BLURRED [None]
